FAERS Safety Report 9752634 (Version 1)
Quarter: 2013Q4

REPORT INFORMATION
  Report Type: Spontaneous
  Country: US (occurrence: US)
  Receive Date: 20131213
  Receipt Date: 20131213
  Transmission Date: 20140711
  Serious: Yes (Other)
  Sender: FDA-Public Use
  Company Number: US-FRI-1000052189

PATIENT
  Age: 0 Day
  Sex: Female

DRUGS (7)
  1. VIIBRYD [Suspect]
     Dosage: 40 MG
     Route: 064
     Dates: start: 2013, end: 20130329
  2. VIIBRYD [Suspect]
     Dosage: 30 MG
     Route: 064
     Dates: start: 20130330, end: 20130401
  3. VIIBRYD [Suspect]
     Dosage: 20 MG
     Route: 064
     Dates: start: 20130402, end: 2013
  4. VIIBRYD [Suspect]
     Dates: end: 2013
  5. VICODIN [Concomitant]
     Route: 064
     Dates: end: 2013
  6. SUMATRIPTAN [Concomitant]
     Route: 064
     Dates: end: 2013
  7. ZOFRAN [Concomitant]
     Route: 064
     Dates: end: 2013

REACTIONS (1)
  - Foetal heart rate deceleration abnormality [Recovered/Resolved]
